FAERS Safety Report 8542920-2 (Version None)
Quarter: 2012Q3

REPORT INFORMATION
  Report Type: 
  Country: None (occurrence: None)
  Receive Date: 20120716
  Receipt Date: 20120629
  Transmission Date: 20120928
  Serious: Yes (Hospitalization)
  Sender: FDA-Public Use
  Company Number: 2012P1039586

PATIENT
  Age: 86 Year
  Sex: Male
  Weight: 61.2356 kg

DRUGS (6)
  1. FUROSEMIDE [Concomitant]
  2. LIPITOR [Concomitant]
  3. CARVEDILOL [Concomitant]
  4. CIPROFLOXACIN [Suspect]
     Indication: CYSTITIS
     Dosage: 500 MG; BID
     Dates: start: 20120517, end: 20120601
  5. POTASSIUM [Concomitant]
  6. BICALUTAMIDE [Concomitant]

REACTIONS (3)
  - DYSURIA [None]
  - CONDITION AGGRAVATED [None]
  - DRUG INEFFECTIVE [None]
